FAERS Safety Report 4476521-2 (Version None)
Quarter: 2004Q4

REPORT INFORMATION
  Report Type: 
  Country: None (occurrence: None)
  Receive Date: 20041013
  Receipt Date: 20040923
  Transmission Date: 20050328
  Serious: Yes (Hospitalization, Other)
  Sender: FDA-Public Use
  Company Number: USA040874597

PATIENT
  Age: 50 Year
  Sex: Female
  Weight: 47 kg

DRUGS (7)
  1. FORTEO [Suspect]
     Indication: OSTEOPOROSIS
     Dates: start: 20040311, end: 20040506
  2. MULTI-VITAMIN [Concomitant]
  3. CALCIUM CARBONATE [Concomitant]
  4. VITAMIN E [Concomitant]
  5. K-DUR 10 [Concomitant]
  6. FOSAMAX (ALENDRONATE SODUM) [Concomitant]
  7. EFFEXOR (VENLAFAXINE HYDROCHLOTIDE) [Concomitant]

REACTIONS (9)
  - ACIDOSIS [None]
  - ELECTROLYTE IMBALANCE [None]
  - HYPERCALCAEMIA [None]
  - HYPOALBUMINAEMIA [None]
  - HYPOPARATHYROIDISM [None]
  - MALNUTRITION [None]
  - NEPHROLITHIASIS [None]
  - PHARMACEUTICAL PRODUCT COMPLAINT [None]
  - RENAL FAILURE ACUTE [None]
